FAERS Safety Report 20016950 (Version 2)
Quarter: 2021Q4

REPORT INFORMATION
  Report Type: Spontaneous
  Country: US (occurrence: None)
  Receive Date: 20211030
  Receipt Date: 20211204
  Transmission Date: 20220303
  Serious: Yes (Death)
  Sender: FDA-Public Use
  Company Number: US-ROCHE-2946608

PATIENT
  Age: 80 Year
  Sex: Female

DRUGS (1)
  1. ERIVEDGE [Suspect]
     Active Substance: VISMODEGIB
     Indication: Neoplasm malignant
     Route: 048

REACTIONS (1)
  - Death [Fatal]

NARRATIVE: CASE EVENT DATE: 20210808
